FAERS Safety Report 13747542 (Version 1)
Quarter: 2017Q3

REPORT INFORMATION
  Report Type: Report from Study
  Country: US (occurrence: US)
  Receive Date: 20170712
  Receipt Date: 20170712
  Transmission Date: 20171127
  Serious: Yes (Death)
  Sender: FDA-Public Use
  Company Number: US-ALLERGAN-1717202US

PATIENT
  Age: 79 Year
  Sex: Male
  Weight: 74.83 kg

DRUGS (9)
  1. BRIMONIDINE [Suspect]
     Active Substance: BRIMONIDINE TARTRATE
     Indication: AGE-RELATED MACULAR DEGENERATION
     Dosage: UNK
     Dates: start: 20150825, end: 20170221
  2. BLINDED PLACEBO [Suspect]
     Active Substance: INVESTIGATIONAL PRODUCT
     Indication: AGE-RELATED MACULAR DEGENERATION
     Dosage: UNK
     Dates: start: 20150825, end: 20170221
  3. OMEPRAZOLE. [Concomitant]
     Active Substance: OMEPRAZOLE
     Indication: GASTROOESOPHAGEAL REFLUX DISEASE
     Dosage: 20 MG, BID
     Route: 048
     Dates: start: 201404
  4. VITAMIN D3 [Concomitant]
     Active Substance: CHOLECALCIFEROL
     Indication: SUPPLEMENTATION THERAPY
     Dosage: ONE CAP, QD
     Route: 048
     Dates: start: 2013
  5. VITAMIN C [Concomitant]
     Active Substance: ASCORBIC ACID
     Indication: SUPPLEMENTATION THERAPY
     Dosage: ONE CAP, QD
     Route: 048
     Dates: start: 2013
  6. VITAMIN B [Concomitant]
     Active Substance: VITAMIN B
     Indication: SUPPLEMENTATION THERAPY
     Dosage: ONE CAP, QD
     Route: 048
     Dates: start: 2013
  7. MEMANTINE. [Concomitant]
     Active Substance: MEMANTINE
     Indication: VASCULAR DEMENTIA
     Dosage: 28 MG, QD
     Route: 048
     Dates: start: 20150407
  8. EXELON [Concomitant]
     Active Substance: RIVASTIGMINE TARTRATE
     Indication: VASCULAR DEMENTIA
  9. OMEGA 3 [Concomitant]
     Active Substance: OMEGA-3 FATTY ACIDS
     Indication: SUPPLEMENTATION THERAPY
     Dosage: ONE CAP, QD
     Route: 048
     Dates: start: 2013

REACTIONS (2)
  - Benign prostatic hyperplasia [Fatal]
  - Dementia Alzheimer^s type [Fatal]

NARRATIVE: CASE EVENT DATE: 20170410
